FAERS Safety Report 10065897 (Version 1)
Quarter: 2014Q2

REPORT INFORMATION
  Report Type: Spontaneous
  Country: US (occurrence: US)
  Receive Date: 20140408
  Receipt Date: 20140408
  Transmission Date: 20141212
  Serious: No
  Sender: FDA-Public Use
  Company Number: US-BAXTER-2014BAX017316

PATIENT
  Sex: Female

DRUGS (2)
  1. GAMMAGARD LIQUID [Suspect]
     Indication: NEUROMYELITIS OPTICA
     Dosage: 1 G/KG IDEAL BODY WEIGHT PER DOSE
     Route: 042
  2. GAMMAGARD LIQUID [Suspect]
     Indication: OFF LABEL USE

REACTIONS (2)
  - Exposure during pregnancy [Recovered/Resolved]
  - No adverse event [Recovered/Resolved]
